FAERS Safety Report 6183584-5 (Version None)
Quarter: 2009Q2

REPORT INFORMATION
  Report Type: 
  Country: None (occurrence: None)
  Receive Date: 20090508
  Receipt Date: 20090306
  Transmission Date: 20091009
  Serious: Yes (Hospitalization, Disabling, Other)
  Sender: FDA-Public Use
  Company Number: JP-PFIZER INC-2009171481

PATIENT
  Age: 75 Year

DRUGS (11)
  1. PIMENOL [Suspect]
     Indication: ATRIAL FIBRILLATION
     Dosage: 100 MG, 2X/DAY
     Route: 048
     Dates: end: 20090126
  2. PIMENOL [Suspect]
     Indication: TACHYARRHYTHMIA
  3. AMLODIPINE [Suspect]
     Dosage: 5 MG, 2X/DAY
     Route: 048
  4. MICARDIS [Suspect]
     Indication: HYPERTENSION
     Dosage: 80 MG, 1X/DAY
     Route: 048
  5. MANIDIPINE HYDROCHLORIDE [Suspect]
     Indication: HYPERTENSION
     Dosage: 20 MG, 1X/DAY
     Route: 048
  6. EXCEGRAN [Suspect]
     Indication: EPILEPSY
     Dosage: 100 MG, 2X/DAY
     Route: 048
  7. VALTREX [Suspect]
     Indication: HERPES ZOSTER
     Dosage: 500 MG, 2X/DAY
     Route: 048
     Dates: start: 20090205, end: 20090216
  8. MERCAZOLE [Suspect]
     Indication: HYPERTHYROIDISM
     Dosage: 5 MG, 3X/DAY
     Route: 048
     Dates: start: 20090215
  9. WARFARIN [Suspect]
     Indication: EMBOLISM
     Dosage: 3 MG, 1X/DAY
     Route: 048
     Dates: start: 20090215, end: 20090223
  10. WARFARIN [Suspect]
     Dosage: 2 MG, 2X/DAY
     Dates: start: 20090224
  11. ALEVIATIN [Suspect]
     Dosage: UNK
     Route: 042

REACTIONS (4)
  - CARDIAC ARREST [None]
  - DIZZINESS POSTURAL [None]
  - LOSS OF CONSCIOUSNESS [None]
  - VENTRICULAR FIBRILLATION [None]
